FAERS Safety Report 19429738 (Version 1)
Quarter: 2021Q2

REPORT INFORMATION
  Report Type: Spontaneous
  Country: US (occurrence: US)
  Receive Date: 20210617
  Receipt Date: 20210617
  Transmission Date: 20210717
  Serious: No
  Sender: FDA-Public Use
  Company Number: US-TEVA-2021-US-1918819

PATIENT
  Age: 77 Year
  Sex: Female

DRUGS (1)
  1. PROAIR RESPICLICK [Suspect]
     Active Substance: ALBUTEROL SULFATE
     Indication: CHRONIC OBSTRUCTIVE PULMONARY DISEASE
     Route: 065

REACTIONS (3)
  - Treatment noncompliance [Not Recovered/Not Resolved]
  - Off label use [Not Recovered/Not Resolved]
  - Feeling jittery [Unknown]
